FAERS Safety Report 4949825-4 (Version None)
Quarter: 2006Q1

REPORT INFORMATION
  Report Type: 
  Country: None (occurrence: None)
  Receive Date: 20060315
  Receipt Date: 20060303
  Transmission Date: 20060701
  Serious: Yes (Hospitalization)
  Sender: FDA-Public Use
  Company Number: HQWYE166906MAR06

PATIENT
  Age: 43 Year
  Sex: Female

DRUGS (2)
  1. LEVONORGESTREL AND ETHINYL ESTRADIOL [Suspect]
     Indication: OVARIAN FAILURE
     Dosage: 1 TABLET 1X PER 1 DAY; ORAL
     Route: 048
     Dates: start: 20060205, end: 20060225
  2. OLMETEC (OLMESARTAN MEDOXOMIL) [Concomitant]

REACTIONS (4)
  - ALANINE AMINOTRANSFERASE INCREASED [None]
  - ASPARTATE AMINOTRANSFERASE INCREASED [None]
  - BLOOD BILIRUBIN INCREASED [None]
  - HEPATIC FUNCTION ABNORMAL [None]
